FAERS Safety Report 9335488 (Version 1)
Quarter: 2013Q2

REPORT INFORMATION
  Report Type: Spontaneous
  Country: US (occurrence: US)
  Receive Date: 20130605
  Receipt Date: 20130605
  Transmission Date: 20140414
  Serious: No
  Sender: FDA-Public Use
  Company Number: US-PFIZER INC-2013166606

PATIENT
  Age: 83 Year
  Sex: Male
  Weight: 74.83 kg

DRUGS (1)
  1. VIAGRA [Suspect]
     Indication: ERECTILE DYSFUNCTION
     Dosage: UNK, 2-3 TABLETS PER WEEK
     Dates: start: 201304

REACTIONS (2)
  - Pruritus genital [Not Recovered/Not Resolved]
  - Penile erythema [Not Recovered/Not Resolved]
